FAERS Safety Report 15331864 (Version 2)
Quarter: 2018Q3

REPORT INFORMATION
  Report Type: Not Available
  Country: US (occurrence: US)
  Receive Date: 20180829
  Receipt Date: 20180918
  Transmission Date: 20181010
  Serious: Yes (Hospitalization)
  Sender: FDA-Public Use
  Company Number: US-NEUROCRINE BIOSCIENCES INC.-2018NBI02559

PATIENT
  Sex: Female

DRUGS (29)
  1. INGREZZA [Suspect]
     Active Substance: VALBENAZINE
     Route: 048
     Dates: start: 20180416, end: 201807
  2. INGREZZA [Suspect]
     Active Substance: VALBENAZINE
     Route: 048
     Dates: start: 2018
  3. ASPRIN [Concomitant]
     Active Substance: ASPIRIN
  4. BUPROPION. [Concomitant]
     Active Substance: BUPROPION
  5. DONEPEZIL. [Concomitant]
     Active Substance: DONEPEZIL
  6. GABAPENTIN. [Concomitant]
     Active Substance: GABAPENTIN
  7. BENZTROPINE. [Concomitant]
     Active Substance: BENZTROPINE
  8. BREO ELLIPTA [Concomitant]
     Active Substance: FLUTICASONE FUROATE\VILANTEROL TRIFENATATE
  9. CALCIUM + D3 [Concomitant]
     Active Substance: CALCIUM\CHOLECALCIFEROL
  10. INGREZZA [Suspect]
     Active Substance: VALBENAZINE
     Indication: PRODUCT USED FOR UNKNOWN INDICATION
     Route: 048
     Dates: start: 20180409, end: 20180415
  11. DOCUSATE [Concomitant]
     Active Substance: DOCUSATE
  12. FLUCONAZOLE. [Concomitant]
     Active Substance: FLUCONAZOLE
  13. FLUTICASONE. [Concomitant]
     Active Substance: FLUTICASONE
  14. FUROSEMIDE. [Concomitant]
     Active Substance: FUROSEMIDE
  15. LORAZEPAM. [Concomitant]
     Active Substance: LORAZEPAM
  16. MEMANTINE. [Concomitant]
     Active Substance: MEMANTINE
  17. MONTELUKAST [Concomitant]
     Active Substance: MONTELUKAST SODIUM
  18. OMEPRAZOLE. [Concomitant]
     Active Substance: OMEPRAZOLE
  19. TACLONEX [Concomitant]
     Active Substance: BETAMETHASONE DIPROPIONATE\CALCIPOTRIENE\CALCIPOTRIENE HYDRATE
  20. XANAX [Concomitant]
     Active Substance: ALPRAZOLAM
  21. POTASSIUM [Concomitant]
     Active Substance: POTASSIUM
  22. LIDOCAINE. [Concomitant]
     Active Substance: LIDOCAINE
  23. PANTOPRAZOLE [Concomitant]
     Active Substance: PANTOPRAZOLE
  24. AMLODIPINE [Concomitant]
     Active Substance: AMLODIPINE BESYLATE
  25. CLOBETASOL PROPIONATE E [Concomitant]
  26. HYDROXYCHLOROQUINE [Concomitant]
     Active Substance: HYDROXYCHLOROQUINE
  27. MULTI COMPLETE [Concomitant]
  28. IRON [Concomitant]
     Active Substance: IRON
  29. LISINOPRIL. [Concomitant]
     Active Substance: LISINOPRIL

REACTIONS (4)
  - Headache [Not Recovered/Not Resolved]
  - Anxiety [Unknown]
  - Pain in extremity [Not Recovered/Not Resolved]
  - Drooling [Not Recovered/Not Resolved]

NARRATIVE: CASE EVENT DATE: 2018
